FAERS Safety Report 8583308-8 (Version None)
Quarter: 2012Q3

REPORT INFORMATION
  Report Type: 
  Country: None (occurrence: None)
  Receive Date: 20120809
  Receipt Date: 20120731
  Transmission Date: 20120928
  Serious: Yes (Hospitalization)
  Sender: FDA-Public Use
  Company Number: US-ABBOTT-12P-163-0962697-00

PATIENT
  Sex: Male
  Weight: 68.1 kg

DRUGS (3)
  1. HUMIRA [Suspect]
     Dosage: TWO WEEKS AFTER 160 MG DOSE
     Dates: start: 20120401, end: 20120401
  2. HUMIRA [Suspect]
     Indication: CROHN'S DISEASE
     Dates: end: 20120401
  3. HUMIRA [Suspect]
     Dates: start: 20120101

REACTIONS (4)
  - SMALL INTESTINAL OBSTRUCTION [None]
  - PROCEDURAL PAIN [None]
  - COLITIS [None]
  - CROHN'S DISEASE [None]
